FAERS Safety Report 9255387 (Version 1)
Quarter: 2013Q2

REPORT INFORMATION
  Report Type: Spontaneous
  Country: FR (occurrence: None)
  Receive Date: 20130422
  Receipt Date: 20130422
  Transmission Date: 20140414
  Serious: Yes (Other)
  Sender: FDA-Public Use
  Company Number: ADR-2013-00681

PATIENT
  Age: 2 Year
  Sex: Female
  Weight: 12 kg

DRUGS (5)
  1. BACLOFEN [Suspect]
     Indication: MUSCLE SPASTICITY
     Dosage: UNKNOWN SEE B5
     Dates: start: 20111201, end: 20111223
  2. EXJADE [Suspect]
     Indication: IRON OVERLOAD
     Route: 048
     Dates: start: 20110626, end: 20111223
  3. ARTANE [Concomitant]
  4. ORACILLINE [Concomitant]
  5. SPECIAFOLDINE [Concomitant]

REACTIONS (4)
  - Hepatocellular injury [None]
  - Hyperbilirubinaemia [None]
  - Aspartate aminotransferase increased [None]
  - Alanine aminotransferase increased [None]
